FAERS Safety Report 14184063 (Version 7)
Quarter: 2018Q4

REPORT INFORMATION
  Report Type: Spontaneous
  Country: GB (occurrence: GB)
  Receive Date: 20171113
  Receipt Date: 20181126
  Transmission Date: 20190204
  Serious: Yes (Other)
  Sender: FDA-Public Use
  Company Number: PHFR2017GB008531

PATIENT
  Age: 43 Year
  Sex: Male

DRUGS (11)
  1. ONDANSETRON HYDROCHLORIDE. [Suspect]
     Active Substance: ONDANSETRON HYDROCHLORIDE
     Indication: NAUSEA
     Dosage: FOUR CYCLES PLANNED OF 21 DAYS EACH; ADMINISTERED ON DAYS 1-5 OF EACH CYCLE, CYCLIC
     Route: 065
     Dates: start: 20170815
  2. ETOPOSIDE. [Suspect]
     Active Substance: ETOPOSIDE
     Indication: TESTICULAR GERM CELL CANCER METASTATIC
     Dosage: CYCLIC (FOUR CYCLES PLANNED OF 21 DAYS EACH; ADMINISTERED ON DAYS 1-5 OF EACH CYCLE)
     Route: 065
     Dates: start: 20170815
  3. CISPLATIN. [Suspect]
     Active Substance: CISPLATIN
     Indication: SEMINOMA
  4. LIPEGFILGRASTIM [Suspect]
     Active Substance: LIPEGFILGRASTIM
     Indication: PRODUCT USED FOR UNKNOWN INDICATION
     Dosage: (FOUR CYCLES PLANNED OF 21 DAYS EACH; ADMINISTERED ON DAY 6 OF EACH CYCLE (SINGLE DOSE) CYCLIC
     Route: 065
     Dates: start: 20170820
  5. ETOPOSIDE. [Suspect]
     Active Substance: ETOPOSIDE
     Indication: SEMINOMA
  6. EMEND [Suspect]
     Active Substance: APREPITANT
     Indication: NAUSEA
     Dosage: (FOUR CYCLES PLANNED OF 21 DAYS EACH; ADMINISTERED ON DAYS 1-3 OF EACH CYCLE), CYCLIC
     Route: 065
     Dates: start: 20170815
  7. CISPLATIN. [Suspect]
     Active Substance: CISPLATIN
     Indication: TESTICULAR GERM CELL CANCER METASTATIC
     Dosage: CYCLIC (FOUR CYCLES PLANNED OF 21 DAYS EACH; ADMINISTERED ON DAYS 1-5 OF EACH CYCLE)
     Route: 065
     Dates: start: 20170815
  8. DEXAMETHASONE. [Suspect]
     Active Substance: DEXAMETHASONE
     Dosage: FOUR CYCLES PLANNED OF 21 DAYS EACH; ADMINISTERED ON DAYS 6-8 OF EACH CYCLE, CYCLIC
     Route: 065
     Dates: start: 20170801
  9. DEXAMETHASONE. [Suspect]
     Active Substance: DEXAMETHASONE
     Dosage: FOUR CYCLES PLANNED OF 21 DAYS EACH; ADMINISTERED ON DAYS 1-5 OF EACH CYCLE, CYCLIC
     Route: 065
     Dates: start: 20170815
  10. DEXAMETHASONE. [Suspect]
     Active Substance: DEXAMETHASONE
     Indication: NAUSEA
     Dosage: FOUR CYCLES PLANNED OF 21 DAYS EACH; ADMINISTERED ON DAYS 6-8 OF EACH CYCLE, CYCLIC
     Route: 065
     Dates: start: 20150801
  11. ZAPONEX [Suspect]
     Active Substance: CLOZAPINE
     Indication: SCHIZOPHRENIA
     Dosage: UNK (GIVEN ON DAYS 1 - 5 OF CHEMOTHERAPY CYCLE)
     Route: 048
     Dates: start: 20151103

REACTIONS (9)
  - Thrombocytopenia [Recovered/Resolved]
  - Leukopenia [Recovered/Resolved]
  - Platelet count increased [Recovered/Resolved]
  - Platelet count decreased [Recovered/Resolved]
  - Neutropenia [Recovered/Resolved]
  - Contraindicated product administered [Not Recovered/Not Resolved]
  - Platelet count increased [Recovered/Resolved]
  - Neutrophil count decreased [Recovered/Resolved]
  - Leukopenia [Recovered/Resolved]

NARRATIVE: CASE EVENT DATE: 20170620
